FAERS Safety Report 5253190-5 (Version None)
Quarter: 2007Q1

REPORT INFORMATION
  Report Type: 
  Country: None (occurrence: None)
  Receive Date: 20070301
  Receipt Date: 20070221
  Transmission Date: 20070707
  Serious: Yes (Hospitalization, Other)
  Sender: FDA-Public Use
  Company Number: US-MERCK-0606USA03852

PATIENT
  Age: 70 Year
  Sex: Female
  Weight: 63 kg

DRUGS (3)
  1. FOSAMAX [Suspect]
     Indication: OSTEOPOROSIS
     Route: 048
     Dates: start: 19970101, end: 20060501
  2. PROCARDIA [Concomitant]
     Route: 065
     Dates: start: 19700101
  3. [THERAPY UNSPECIFIED] [Concomitant]
     Route: 065

REACTIONS (8)
  - ABSCESS [None]
  - ASTHMA [None]
  - DENTAL CARIES [None]
  - DIVERTICULITIS [None]
  - GINGIVAL BLEEDING [None]
  - OSTEOARTHRITIS [None]
  - OSTEONECROSIS [None]
  - PNEUMONIA [None]
